FAERS Safety Report 6975424-9 (Version None)
Quarter: 2010Q3

REPORT INFORMATION
  Report Type: 
  Country: None (occurrence: None)
  Receive Date: 20100910
  Receipt Date: 20100715
  Transmission Date: 20110219
  Serious: Yes (Hospitalization)
  Sender: FDA-Public Use
  Company Number: US-BAYER-201015380NA

PATIENT
  Age: 48 Year
  Sex: Female
  Weight: 127 kg

DRUGS (21)
  1. YASMIN [Suspect]
     Indication: CONTRACEPTION
     Route: 048
     Dates: start: 20011101, end: 20070601
  2. BENICAR HCT [Concomitant]
  3. CLONIDINE [Concomitant]
  4. POTASSIUM [Concomitant]
  5. SYNTHROID [Concomitant]
  6. NORCO [Concomitant]
  7. PHENERGAN [Concomitant]
  8. MIRAPEX [Concomitant]
  9. NEXIUM [Concomitant]
  10. ADIPEX [Concomitant]
  11. REQUIP [Concomitant]
  12. LEXAPRO [Concomitant]
  13. ATIVAN [Concomitant]
  14. LOTREL [Concomitant]
  15. ADVAIR DISKUS 100/50 [Concomitant]
  16. DARVOCET [Concomitant]
  17. DEMEROL [Concomitant]
  18. VIOXX [Concomitant]
  19. CELEBREX [Concomitant]
  20. NAPROSYN [Concomitant]
  21. XANAX [Concomitant]

REACTIONS (7)
  - COUGH [None]
  - DEEP VEIN THROMBOSIS [None]
  - DYSPNOEA [None]
  - ERYTHEMA [None]
  - OEDEMA PERIPHERAL [None]
  - PAIN IN EXTREMITY [None]
  - PULMONARY EMBOLISM [None]
